FAERS Safety Report 23336194 (Version 3)
Quarter: 2024Q1

REPORT INFORMATION
  Report Type: Spontaneous
  Country: US (occurrence: US)
  Receive Date: 20231225
  Receipt Date: 20240111
  Transmission Date: 20240410
  Serious: No
  Sender: FDA-Public Use
  Company Number: US-TAKEDA-2023TUS123413

PATIENT
  Age: 56 Year
  Sex: Female

DRUGS (1)
  1. TRINTELLIX [Suspect]
     Active Substance: VORTIOXETINE HYDROBROMIDE
     Indication: Major depression
     Dosage: UNK
     Route: 065

REACTIONS (17)
  - Depressed mood [Unknown]
  - Anhedonia [Unknown]
  - Weight abnormal [Unknown]
  - Fatigue [Unknown]
  - Asthenia [Unknown]
  - Feelings of worthlessness [Unknown]
  - Feeling guilty [Unknown]
  - Disturbance in attention [Unknown]
  - Negative thoughts [Unknown]
  - Abulia [Unknown]
  - Anxiety [Unknown]
  - Feeling abnormal [Unknown]
  - Distractibility [Unknown]
  - Restlessness [Unknown]
  - Hyperarousal [Unknown]
  - Insomnia [Unknown]
  - Irritability [Unknown]
